FAERS Safety Report 5114146-6 (Version None)
Quarter: 2006Q3

REPORT INFORMATION
  Report Type: 
  Country: None (occurrence: None)
  Receive Date: 20060920
  Receipt Date: 20060915
  Transmission Date: 20061208
  Serious: Yes (Other)
  Sender: FDA-Public Use
  Company Number: FR-2006-027000

PATIENT
  Sex: Female

DRUGS (1)
  1. MIRENA [Suspect]
     Dosage: 20 UG/DAY, CONT, INTRA-UTERINE
     Route: 015
     Dates: start: 20050301, end: 20060818

REACTIONS (3)
  - ANGIONEUROTIC OEDEMA [None]
  - THERAPY NON-RESPONDER [None]
  - UTERINE INFECTION [None]
